FAERS Safety Report 23603384 (Version 1)
Quarter: 2024Q1

REPORT INFORMATION
  Report Type: Spontaneous
  Country: US (occurrence: US)
  Receive Date: 20240307
  Receipt Date: 20240307
  Transmission Date: 20240410
  Serious: Yes (Hospitalization, Other)
  Sender: FDA-Public Use
  Company Number: US-NOVOPROD-1182914

PATIENT
  Age: 81 Year
  Sex: Female

DRUGS (1)
  1. OZEMPIC [Suspect]
     Active Substance: SEMAGLUTIDE
     Indication: Product used for unknown indication
     Dosage: UNK
     Route: 058
     Dates: start: 20240201, end: 20240208

REACTIONS (2)
  - Atrial fibrillation [Not Recovered/Not Resolved]
  - Heart rate irregular [Not Recovered/Not Resolved]

NARRATIVE: CASE EVENT DATE: 20240201
